FAERS Safety Report 9001532 (Version 2)
Quarter: 2013Q1

REPORT INFORMATION
  Report Type: Spontaneous
  Country: US (occurrence: US)
  Receive Date: 20130107
  Receipt Date: 20130204
  Transmission Date: 20140127
  Serious: Yes (Other)
  Sender: FDA-Public Use
  Company Number: US-BAYER-2013-002164

PATIENT
  Age: 46 Year
  Sex: Female

DRUGS (1)
  1. MIRENA [Suspect]
     Indication: CONTRACEPTION
     Dosage: 20 MCG/24HR, CONT
     Route: 015
     Dates: start: 20121031, end: 20121212

REACTIONS (4)
  - Vaginitis bacterial [Recovering/Resolving]
  - Endometritis [Recovered/Resolved]
  - Vaginal discharge [Recovering/Resolving]
  - Pelvic pain [Recovering/Resolving]
